FAERS Safety Report 19264168 (Version 2)
Quarter: 2021Q2

REPORT INFORMATION
  Report Type: Spontaneous
  Country: US (occurrence: US)
  Receive Date: 20210517
  Receipt Date: 20210521
  Transmission Date: 20210717
  Serious: Yes (Other)
  Sender: FDA-Public Use
  Company Number: US-GILEAD-2021-0529986

PATIENT
  Sex: Male

DRUGS (2)
  1. MODERNA COVID?19 VACCINE [Concomitant]
     Active Substance: CX-024414
  2. EPCLUSA [Suspect]
     Active Substance: SOFOSBUVIR\VELPATASVIR
     Indication: CHRONIC HEPATITIS C
     Route: 065

REACTIONS (1)
  - Drug ineffective [Recovered/Resolved]
